FAERS Safety Report 4385449-8 (Version None)
Quarter: 2004Q2

REPORT INFORMATION
  Report Type: 
  Country: None (occurrence: None)
  Receive Date: 20040622
  Receipt Date: 20040607
  Transmission Date: 20050107
  Serious: Yes (Hospitalization)
  Sender: FDA-Public Use
  Company Number: S04-USA-02244-01

PATIENT
  Age: 76 Year
  Sex: Male
  Weight: 59.1944 kg

DRUGS (16)
  1. CELEXA [Suspect]
     Indication: DEPRESSION
     Dosage: 30 MG QD PO
     Route: 048
     Dates: start: 20040101
  2. KAYEXALATE [Concomitant]
  3. COREG [Concomitant]
  4. LASIX [Concomitant]
  5. PROTONIX [Concomitant]
  6. ATIVAN [Concomitant]
  7. LEXAPRO [Concomitant]
  8. IMDUR [Concomitant]
  9. NORVASC [Concomitant]
  10. ASPIRIN [Concomitant]
  11. COMBIVENT [Concomitant]
  12. NORTRIPTYLINE HCL [Concomitant]
  13. LORAZEPAM [Concomitant]
  14. MULTI-VITAMIN [Concomitant]
  15. COLACE (DOCUSATE SODIUM) [Concomitant]
  16. CALCIUM WITH VITAMIN D [Concomitant]

REACTIONS (21)
  - ABNORMAL BEHAVIOUR [None]
  - ACTIVITIES OF DAILY LIVING IMPAIRED [None]
  - ANAEMIA [None]
  - AORTIC CALCIFICATION [None]
  - ARTHRALGIA [None]
  - ATELECTASIS [None]
  - BODY TEMPERATURE INCREASED [None]
  - CARDIAC FAILURE CONGESTIVE [None]
  - DIASTOLIC DYSFUNCTION [None]
  - DISEASE RECURRENCE [None]
  - FALL [None]
  - GASTRITIS [None]
  - HEPATOMEGALY [None]
  - HYPERTENSIVE HEART DISEASE [None]
  - PLEURAL EFFUSION [None]
  - RENAL ARTERY STENOSIS [None]
  - RENAL ATROPHY [None]
  - RENAL CYST [None]
  - RENAL FAILURE CHRONIC [None]
  - RENAL VESSEL DISORDER [None]
  - TRICUSPID VALVE DISEASE [None]
